FAERS Safety Report 7954653-1 (Version None)
Quarter: 2011Q4

REPORT INFORMATION
  Report Type: 
  Country: None (occurrence: None)
  Receive Date: 20111202
  Receipt Date: 20111129
  Transmission Date: 20120403
  Serious: Yes (Other)
  Sender: FDA-Public Use
  Company Number: PHHY2011BE104813

PATIENT
  Sex: Male

DRUGS (1)
  1. ONBREZ [Suspect]
     Indication: CHRONIC OBSTRUCTIVE PULMONARY DISEASE
     Dosage: 150 MICROGRAM PER INHALATION

REACTIONS (3)
  - VITAL CAPACITY DECREASED [None]
  - CHEST DISCOMFORT [None]
  - CHEST PAIN [None]
